FAERS Safety Report 14836130 (Version 2)
Quarter: 2018Q2

REPORT INFORMATION
  Report Type: Spontaneous
  Country: US (occurrence: US)
  Receive Date: 20180502
  Receipt Date: 20180518
  Transmission Date: 20180711
  Serious: No
  Sender: FDA-Public Use
  Company Number: US-PFIZER INC-2018172681

PATIENT
  Age: 3 Year
  Sex: Male

DRUGS (1)
  1. EUCRISA [Suspect]
     Active Substance: CRISABOROLE
     Indication: PERIORAL DERMATITIS
     Dosage: UNK (SMALL AMOUNT) 2X/DAY
     Route: 061
     Dates: start: 20180421, end: 20180507

REACTIONS (2)
  - Drug ineffective [Unknown]
  - Erythema [Not Recovered/Not Resolved]
